FAERS Safety Report 5525709-8 (Version None)
Quarter: 2007Q4

REPORT INFORMATION
  Report Type: 
  Country: None (occurrence: None)
  Receive Date: 20071126
  Receipt Date: 20071116
  Transmission Date: 20080405
  Serious: Yes (Life-Threatening, Hospitalization)
  Sender: FDA-Public Use
  Company Number: AU-ROCHE-461804

PATIENT
  Age: 30 Year
  Sex: Male
  Weight: 80.2 kg

DRUGS (12)
  1. VALIUM [Suspect]
     Indication: DRUG USE FOR UNKNOWN INDICATION
     Dosage: PATIENT SWALLOWED X49 5 MG TABS
     Route: 065
     Dates: start: 20060829
  2. VALIUM [Suspect]
     Route: 065
     Dates: start: 20060513
  3. PEG-INTERFERON ALFA 2A (RO 25-8310) [Suspect]
     Dosage: DATE OF LAST DOSE PRIOR TO SAE WAS REPORTED AS 24 AUG 2006
     Route: 058
     Dates: start: 20060519, end: 20060831
  4. PEG-INTERFERON ALFA 2A (RO 25-8310) [Suspect]
     Route: 058
     Dates: start: 20060519
  5. ASPIRIN [Suspect]
     Indication: DRUG USE FOR UNKNOWN INDICATION
     Route: 065
  6. NICOTINE PATCHES [Concomitant]
     Dates: start: 20060629
  7. CITALOPRAM [Concomitant]
     Dates: start: 20060713
  8. VALTREX [Concomitant]
  9. SORBOLENE CREAM [Concomitant]
     Dosage: TDD REPORTED AS VARIABLE
     Route: 061
     Dates: start: 20060522
  10. CORTISONE ACETATE [Concomitant]
     Dosage: TDD REPORTED AS VARIABLE
     Route: 061
     Dates: start: 20060607
  11. CETAPHIL [Concomitant]
     Dosage: DRUG REPORTED AS CETAPHIL CREAM TDD REPORTED AS VARIABLE
     Route: 061
     Dates: start: 20060624
  12. TRAMADOL HCL [Concomitant]
     Dosage: TDD REPORTED AS VARIABLE
     Dates: start: 20070308

REACTIONS (2)
  - CHEST PAIN [None]
  - OVERDOSE [None]
